FAERS Safety Report 5121328-6 (Version None)
Quarter: 2006Q4

REPORT INFORMATION
  Report Type: 
  Country: None (occurrence: None)
  Receive Date: 20061002
  Receipt Date: 20060921
  Transmission Date: 20070319
  Serious: Yes (Death)
  Sender: FDA-Public Use
  Company Number: 2006106956

PATIENT
  Age: 72 Year
  Sex: Female

DRUGS (7)
  1. CAMPTOSAR [Suspect]
     Indication: GASTRIC CANCER
     Dosage: 57 MG/M2, INTRAVENOUS
     Route: 042
     Dates: start: 20060822, end: 20060822
  2. CISPLATIN [Suspect]
     Indication: GASTRIC CANCER
     Dosage: 28.5 MG/M2, INTRAVENOUS
     Route: 042
     Dates: start: 20060822, end: 20060822
  3. DOGMATYL (SULPIRIDE) [Concomitant]
  4. ULCERMIN (SUCRALFATE) [Concomitant]
  5. TORSEMIDE [Concomitant]
  6. FOSMICIN (FOSFOMYCIN CALCIUM) [Concomitant]
  7. LASIX [Concomitant]

REACTIONS (13)
  - ANOREXIA [None]
  - ASCITES [None]
  - BLOOD CREATININE INCREASED [None]
  - BLOOD PRESSURE DIASTOLIC DECREASED [None]
  - CARDIAC ARREST [None]
  - DEPRESSED LEVEL OF CONSCIOUSNESS [None]
  - DISSEMINATED INTRAVASCULAR COAGULATION [None]
  - HAEMORRHAGE SUBCUTANEOUS [None]
  - HYPOGLYCAEMIA [None]
  - LEUKOPENIA [None]
  - MALAISE [None]
  - SHOCK [None]
  - THROMBOCYTOPENIA [None]
